FAERS Safety Report 17476095 (Version 1)
Quarter: 2020Q1

REPORT INFORMATION
  Report Type: Spontaneous
  Country: US (occurrence: US)
  Receive Date: 20200228
  Receipt Date: 20200228
  Transmission Date: 20200409
  Serious: Yes (Other)
  Sender: FDA-Public Use
  Company Number: US-ASTRAZENECA-2020SE28694

PATIENT
  Sex: Female
  Weight: 97.1 kg

DRUGS (6)
  1. FASLODEX [Suspect]
     Active Substance: FULVESTRANT
     Indication: BREAST CANCER METASTATIC
     Dosage: ONCE A MONTH
     Route: 030
     Dates: start: 201911
  2. METFORMIN [Concomitant]
     Active Substance: METFORMIN HYDROCHLORIDE
     Indication: BLOOD GLUCOSE ABNORMAL
     Dates: start: 202002
  3. NOVOLOG [Concomitant]
     Active Substance: INSULIN ASPART
  4. LEVOTHYROXENE [Concomitant]
     Indication: THYROID DISORDER
  5. BASLAGAR INSULN [Concomitant]
     Indication: BLOOD GLUCOSE ABNORMAL
     Dates: start: 202002
  6. ATORVASTATIN [Concomitant]
     Active Substance: ATORVASTATIN
     Dosage: 20.0MG UNKNOWN

REACTIONS (1)
  - Blood glucose increased [Unknown]
